FAERS Safety Report 8269052-5 (Version None)
Quarter: 2012Q2

REPORT INFORMATION
  Report Type: 
  Country: None (occurrence: None)
  Receive Date: 20120409
  Receipt Date: 20120404
  Transmission Date: 20120825
  Serious: Yes (Other)
  Sender: FDA-Public Use
  Company Number: US-PFIZER INC-2012085891

PATIENT
  Sex: Female

DRUGS (4)
  1. LIPITOR [Suspect]
     Indication: BLOOD CHOLESTEROL INCREASED
     Dosage: 40 MG, 1X/DAY
     Route: 048
     Dates: start: 20080701, end: 20120404
  2. METFORMIN [Concomitant]
     Dosage: UNK
  3. PLAVIX [Concomitant]
     Dosage: UNK
  4. ASPIRIN [Suspect]
     Dosage: UNK

REACTIONS (6)
  - MALAISE [None]
  - RASH [None]
  - GASTRIC DISORDER [None]
  - URTICARIA [None]
  - CARDIAC DISORDER [None]
  - DERMATITIS ALLERGIC [None]
